FAERS Safety Report 24240439 (Version 2)
Quarter: 2024Q3

REPORT INFORMATION
  Report Type: Report from Study
  Country: US (occurrence: US)
  Receive Date: 20240822
  Receipt Date: 20240922
  Transmission Date: 20241017
  Serious: Yes (Other)
  Sender: JOHNSON AND JOHNSON
  Company Number: US-JNJFOC-20240768475

PATIENT
  Sex: Female

DRUGS (1)
  1. SPRAVATO [Suspect]
     Active Substance: ESKETAMINE
     Indication: Depression
     Dosage: 84 MG, 15 TOTAL DOSES , LATEST DOSE 15-AUG-2024
     Dates: start: 20240606, end: 20240808

REACTIONS (5)
  - Lung disorder [Recovered/Resolved]
  - COVID-19 [Recovered/Resolved]
  - Viral infection [Unknown]
  - Decreased appetite [Not Recovered/Not Resolved]
  - Depression [Recovering/Resolving]

NARRATIVE: CASE EVENT DATE: 20240101
